FAERS Safety Report 5887738-4 (Version None)
Quarter: 2008Q3

REPORT INFORMATION
  Report Type: 
  Country: None (occurrence: None)
  Receive Date: 20080918
  Receipt Date: 20080915
  Transmission Date: 20090109
  Serious: Yes (Hospitalization)
  Sender: FDA-Public Use
  Company Number: IT-BAYER-200826272GPV

PATIENT
  Age: 64 Year
  Sex: Male

DRUGS (4)
  1. ASPIRIN [Suspect]
     Indication: PROPHYLAXIS
     Dosage: TOTAL DAILY DOSE: 100 MG  UNIT DOSE: 100 MG
     Route: 048
     Dates: start: 20080821, end: 20080831
  2. OMEPRAZOLE [Concomitant]
     Indication: PROPHYLAXIS
     Dosage: TOTAL DAILY DOSE: 20 MG  UNIT DOSE: 20 MG
     Route: 048
     Dates: start: 20080821, end: 20080831
  3. LASIX [Concomitant]
     Indication: RENAL FAILURE CHRONIC
     Dosage: TOTAL DAILY DOSE: 50 MG  UNIT DOSE: 25 MG
     Route: 048
     Dates: start: 20080821, end: 20080831
  4. CARVEDILOL [Concomitant]
     Indication: CONGESTIVE CARDIOMYOPATHY
     Dosage: TOTAL DAILY DOSE: 1.562 MG  UNIT DOSE: 1.562 MG
     Route: 048
     Dates: start: 20080821, end: 20080831

REACTIONS (5)
  - ANAEMIA [None]
  - DUODENAL ULCER [None]
  - GASTRITIS EROSIVE [None]
  - GASTROINTESTINAL HAEMORRHAGE [None]
  - RENAL FAILURE ACUTE [None]
